FAERS Safety Report 4517525-0 (Version None)
Quarter: 2004Q4

REPORT INFORMATION
  Report Type: 
  Country: None (occurrence: None)
  Receive Date: 20041027
  Receipt Date: 20040811
  Transmission Date: 20050328
  Serious: No
  Sender: FDA-Public Use
  Company Number: US087096

PATIENT
  Age: 48 Year
  Sex: Male

DRUGS (13)
  1. SENSIPAR [Suspect]
     Indication: HYPERPARATHYROIDISM SECONDARY
     Dosage: 30 MG, 1 IN 1 DAYS, PO
     Route: 048
     Dates: start: 20040407
  2. VENOFER [Concomitant]
  3. SODIUM BICARBONATE [Concomitant]
  4. MULTI-VITAMINS [Concomitant]
  5. ASCORBIC ACID [Concomitant]
  6. TUMS [Concomitant]
  7. PARICALCITOL [Concomitant]
  8. ATENOLOL [Concomitant]
  9. CARNITINE [Concomitant]
  10. OMEPRAZOLE [Concomitant]
  11. MINOXIDIL [Concomitant]
  12. CALCIUM [Concomitant]
  13. EPOGEN [Concomitant]

REACTIONS (2)
  - DRUG INEFFECTIVE [None]
  - HYPOCALCAEMIA [None]
